FAERS Safety Report 14337098 (Version 1)
Quarter: 2017Q4

REPORT INFORMATION
  Report Type: Spontaneous
  Country: US (occurrence: US)
  Receive Date: 20171229
  Receipt Date: 20171229
  Transmission Date: 20180321
  Serious: Yes (Hospitalization, Other)
  Sender: FDA-Public Use
  Company Number: US-ASTRAZENECA-2017SF32312

PATIENT
  Age: 73 Year
  Sex: Female
  Weight: 56.2 kg

DRUGS (7)
  1. CRANBERRY SUPPLEMENT [Concomitant]
     Route: 048
  2. LISINOPRIL. [Suspect]
     Active Substance: LISINOPRIL
     Indication: HYPERTENSION
     Route: 048
     Dates: start: 201712
  3. CRESTOR [Suspect]
     Active Substance: ROSUVASTATIN CALCIUM
     Indication: HYPERCHOLESTEROLAEMIA
     Route: 048
     Dates: start: 2004
  4. ASPIRIN. [Concomitant]
     Active Substance: ASPIRIN
     Indication: PROPHYLAXIS
     Route: 048
     Dates: start: 2006
  5. CRESTOR [Suspect]
     Active Substance: ROSUVASTATIN CALCIUM
     Indication: HYPERCHOLESTEROLAEMIA
     Dosage: GENERIC
     Route: 065
     Dates: start: 201606
  6. CARVEDILOL. [Concomitant]
     Active Substance: CARVEDILOL
     Indication: PROPHYLAXIS
     Route: 048
  7. VITAMIN D [Concomitant]
     Active Substance: CHOLECALCIFEROL
     Indication: PROPHYLAXIS
     Dosage: DAILY
     Route: 048
     Dates: start: 2009

REACTIONS (18)
  - Exercise lack of [Not Recovered/Not Resolved]
  - Drug hypersensitivity [Unknown]
  - Blood pressure fluctuation [Unknown]
  - Hyperreflexia [Unknown]
  - Hypokinesia [Not Recovered/Not Resolved]
  - Decubitus ulcer [Recovered/Resolved]
  - Infection [Unknown]
  - Musculoskeletal discomfort [Not Recovered/Not Resolved]
  - Condition aggravated [Recovered/Resolved]
  - Malaise [Unknown]
  - Hallucination [Recovered/Resolved]
  - Dry skin [Not Recovered/Not Resolved]
  - Skin disorder [Unknown]
  - Vomiting projectile [Recovered/Resolved]
  - Eschar [Unknown]
  - Vertigo positional [Not Recovered/Not Resolved]
  - Fatigue [Recovered/Resolved]
  - Internal haemorrhage [Recovered/Resolved]

NARRATIVE: CASE EVENT DATE: 2016
